APPROVED DRUG PRODUCT: ARFORMOTEROL TARTRATE
Active Ingredient: ARFORMOTEROL TARTRATE
Strength: EQ 0.015MG BASE/2ML
Dosage Form/Route: SOLUTION;INHALATION
Application: A216303 | Product #001 | TE Code: AN
Applicant: NEOCUBES PHARMA LLP
Approved: May 17, 2024 | RLD: No | RS: No | Type: RX